FAERS Safety Report 5360225-8 (Version None)
Quarter: 2007Q2

REPORT INFORMATION
  Report Type: 
  Country: None (occurrence: None)
  Receive Date: 20070612
  Receipt Date: 20070530
  Transmission Date: 20071010
  Serious: Yes (Hospitalization)
  Sender: FDA-Public Use
  Company Number: 1-14984456/MED 07116

PATIENT

DRUGS (1)
  1. BACTRIM [Suspect]
     Dosage: ORAL
     Route: 048

REACTIONS (1)
  - VANISHING BILE DUCT SYNDROME [None]
